FAERS Safety Report 5491149-3 (Version None)
Quarter: 2007Q4

REPORT INFORMATION
  Report Type: 
  Country: None (occurrence: None)
  Receive Date: 20071019
  Receipt Date: 20071009
  Transmission Date: 20080405
  Serious: Yes (Hospitalization)
  Sender: FDA-Public Use
  Company Number: US-GILEAD-2007-0013801

PATIENT
  Age: 62 Year
  Sex: Female

DRUGS (2)
  1. LETAIRIS [Suspect]
     Dates: start: 20070810
  2. REVATIO [Concomitant]

REACTIONS (5)
  - COUGH [None]
  - DYSPNOEA [None]
  - FLUID OVERLOAD [None]
  - HYPOTENSION [None]
  - OEDEMA [None]
